FAERS Safety Report 4783525-9 (Version None)
Quarter: 2005Q3

REPORT INFORMATION
  Report Type: 
  Country: None (occurrence: None)
  Receive Date: 20050928
  Receipt Date: 20050928
  Transmission Date: 20060218
  Serious: Yes (Death, Life-Threatening, Hospitalization)
  Sender: FDA-Public Use
  Company Number: None

PATIENT
  Sex: Female
  Weight: 55.3388 kg

DRUGS (14)
  1. TAXOTERE [Suspect]
     Indication: NEOPLASM MALIGNANT
     Dosage: 55 MG/M2  EVERY 21 DAYS  IV DRIP
     Route: 041
     Dates: start: 20050901, end: 20050922
  2. PARAPLATIN [Suspect]
     Indication: NEOPLASM MALIGNANT
     Dosage: AUC 5  EVERY 21 DAYS  INTRAPERIT
     Route: 033
     Dates: start: 20050901, end: 20050922
  3. TAXOL [Concomitant]
  4. MIRALAX [Concomitant]
  5. PERCOCET [Concomitant]
  6. COUMADIN [Concomitant]
  7. ZOFRAN [Concomitant]
  8. MSCOTIN [Concomitant]
  9. PHENERGAN [Concomitant]
  10. MSIR [Concomitant]
  11. DECADRON [Concomitant]
  12. AMEND [Concomitant]
  13. AMBIEN [Concomitant]
  14. ZANTAC [Concomitant]

REACTIONS (14)
  - ACTIVATED PARTIAL THROMBOPLASTIN TIME PROLONGED [None]
  - AGGRESSION [None]
  - ANXIETY [None]
  - ASCITES [None]
  - BRADYCARDIA [None]
  - CARDIAC ARREST [None]
  - CATHETER SITE PAIN [None]
  - INTERNATIONAL NORMALISED RATIO INCREASED [None]
  - NODAL RHYTHM [None]
  - PAIN IN EXTREMITY [None]
  - PROTHROMBIN TIME PROLONGED [None]
  - PULMONARY EMBOLISM [None]
  - PULSE ABSENT [None]
  - PUPIL FIXED [None]
